FAERS Safety Report 7415805-2 (Version None)
Quarter: 2011Q2

REPORT INFORMATION
  Report Type: 
  Country: None (occurrence: None)
  Receive Date: 20110406
  Receipt Date: 20110329
  Transmission Date: 20111010
  Serious: Yes (Disabling)
  Sender: FDA-Public Use
  Company Number: CAP10000454

PATIENT
  Age: 82 Year
  Sex: Female
  Weight: 85 kg

DRUGS (12)
  1. ADALAT CC [Concomitant]
  2. EZETIMIBE [Concomitant]
  3. FOSAMAX [Suspect]
     Indication: OSTEOPOROSIS
     Dosage: 70 MG, 1/WEEK, ORAL
     Route: 048
     Dates: start: 20091101, end: 20100331
  4. DETROL LA [Concomitant]
  5. RABEPRAZOLE SODIUM [Concomitant]
  6. ERGOCALCIFEROL [Concomitant]
  7. DIDROCAL (ETIDRONATE DISODIUM/ CALCIUM CARBONATE CYCLICAL) [Suspect]
     Indication: OSTEOPOROSIS
     Dosage: ORAL
     Route: 048
     Dates: start: 20030101, end: 20091101
  8. GLYBURIDE [Concomitant]
  9. ACTOS [Concomitant]
  10. AVAPRO [Concomitant]
  11. METHYLDOPA [Concomitant]
  12. ZOLOFT [Concomitant]

REACTIONS (6)
  - IMPAIRED HEALING [None]
  - STRESS FRACTURE [None]
  - FIBULA FRACTURE [None]
  - PATHOLOGICAL FRACTURE [None]
  - PAIN [None]
  - GENERAL PHYSICAL HEALTH DETERIORATION [None]
